FAERS Safety Report 5004511-X (Version None)
Quarter: 2006Q2

REPORT INFORMATION
  Report Type: 
  Country: None (occurrence: None)
  Receive Date: 20060511
  Receipt Date: 20060428
  Transmission Date: 20061013
  Serious: Yes (Hospitalization)
  Sender: FDA-Public Use
  Company Number: 2006BI004545

PATIENT
  Age: 45 Year
  Sex: Female
  Weight: 64.4108 kg

DRUGS (1)
  1. AVONEX [Suspect]
     Indication: MULTIPLE SCLEROSIS
     Dosage: IM
     Route: 030
     Dates: end: 20060101

REACTIONS (4)
  - CHOLECYSTECTOMY [None]
  - GASTRIC DISORDER [None]
  - INTESTINAL PERFORATION [None]
  - POST PROCEDURAL COMPLICATION [None]
